FAERS Safety Report 9006023 (Version 2)
Quarter: 2013Q1

REPORT INFORMATION
  Report Type: Spontaneous
  Country: US (occurrence: US)
  Receive Date: 20130109
  Receipt Date: 20130213
  Transmission Date: 20140127
  Serious: No
  Sender: FDA-Public Use
  Company Number: PHEH2012US008242

PATIENT
  Sex: Female

DRUGS (21)
  1. GLEEVEC [Suspect]
     Dosage: 2 DF, PER DAY
     Dates: start: 20090424
  2. TASIGNA [Suspect]
     Dosage: 1500 MG, 4 X PER DAY
  3. FAMOTIDINE [Suspect]
     Dosage: 40 MG, TID
  4. CYMBALTA [Suspect]
     Dosage: 30 MG, TID
  5. SINGULAIR [Suspect]
     Dosage: 10 MG, QD
  6. HYDROCODONE [Suspect]
     Dosage: 5-500
  7. PROMETHAZINE [Suspect]
     Dosage: 25 MG, UNK
  8. FLUCONAZOLE [Suspect]
     Dosage: 100 MG, UNK
  9. ONDANSETRON HCL [Suspect]
     Dosage: 8 MG, UNK
  10. ALPRAZOLAM [Suspect]
     Dosage: 0.5 MG, UNK
  11. COMBIVENT [Suspect]
  12. ACETAMINOPHEN [Suspect]
  13. NEOSPORIN-H [Concomitant]
  14. ALBUTEROL SULFATE [Concomitant]
  15. PREDNISONE [Concomitant]
  16. SYMBICORT [Concomitant]
  17. FLUCONAZOLE [Concomitant]
  18. ALPRAZOLAM [Concomitant]
  19. THAM [Concomitant]
  20. HYDROCODONE W/ACETAMINOPHEN [Concomitant]
  21. ONDANSETRON [Concomitant]

REACTIONS (12)
  - Rheumatoid arthritis [Unknown]
  - Asthma [Unknown]
  - Abnormal loss of weight [Unknown]
  - Dehydration [Unknown]
  - Diarrhoea [Unknown]
  - Abdominal pain upper [Unknown]
  - Headache [Unknown]
  - White blood cell count increased [Unknown]
  - Vomiting [Unknown]
  - Fibromyalgia [Unknown]
  - Drug ineffective [Unknown]
  - Neuropathy peripheral [Unknown]
